FAERS Safety Report 7487381-X (Version None)
Quarter: 2011Q1

REPORT INFORMATION
  Report Type: 
  Country: None (occurrence: None)
  Receive Date: 20110309
  Receipt Date: 20110106
  Transmission Date: 20110831
  Serious: No
  Sender: FDA-Public Use
  Company Number: 2011SP000827

PATIENT
  Age: 35 Year
  Sex: Female

DRUGS (4)
  1. PAXIL [Concomitant]
  2. SEROQUEL [Concomitant]
  3. SAPHRIS [Suspect]
     Indication: BIPOLAR DISORDER
     Dosage: 5 MG; QPM; SL
     Route: 060
     Dates: start: 20101201
  4. LITHIUM CARBONATE [Concomitant]

REACTIONS (3)
  - INAPPROPRIATE SCHEDULE OF DRUG ADMINISTRATION [None]
  - UNDERDOSE [None]
  - INCREASED APPETITE [None]
